FAERS Safety Report 15731406 (Version 1)
Quarter: 2018Q4

REPORT INFORMATION
  Report Type: Spontaneous
  Country: FR (occurrence: FR)
  Receive Date: 20181217
  Receipt Date: 20181217
  Transmission Date: 20190205
  Serious: Yes (Congenital Anomaly)
  Sender: FDA-Public Use
  Company Number: FR-MYLANLABS-2018M1092971

PATIENT
  Sex: Male
  Weight: 2.94 kg

DRUGS (5)
  1. DESLORATADINE MYLAN [Suspect]
     Active Substance: DESLORATADINE
     Indication: RHINITIS ALLERGIC
     Route: 064
     Dates: start: 20140814
  2. UMULINE [Suspect]
     Active Substance: INSULIN HUMAN
     Indication: GESTATIONAL DIABETES
     Dosage: UNK
     Route: 064
     Dates: start: 201405, end: 20140907
  3. PARACETAMOL MYLAN 1 G, COMPRIM? S?CABLE [Suspect]
     Active Substance: ACETAMINOPHEN
     Indication: PAIN
     Route: 064
     Dates: start: 20140814
  4. TRINORDIOL [Suspect]
     Active Substance: ETHINYL ESTRADIOL\LEVONORGESTREL
     Indication: CONTRACEPTION
     Dosage: 1 DOSAGE FORM, QD
     Route: 064
     Dates: end: 2014
  5. NOVORAPID [Suspect]
     Active Substance: INSULIN ASPART
     Indication: GESTATIONAL DIABETES
     Dosage: UNK
     Route: 064
     Dates: start: 201405, end: 20140907

REACTIONS (5)
  - Single umbilical artery [Recovered/Resolved]
  - Ventricular septal defect [Recovered/Resolved]
  - Haemangioma [Not Recovered/Not Resolved]
  - Spermatic cord disorder [Not Recovered/Not Resolved]
  - Foetal exposure during pregnancy [Recovered/Resolved]

NARRATIVE: CASE EVENT DATE: 2014
